FAERS Safety Report 6921128-8 (Version None)
Quarter: 2010Q3

REPORT INFORMATION
  Report Type: 
  Country: None (occurrence: None)
  Receive Date: 20100812
  Receipt Date: 20100803
  Transmission Date: 20110219
  Serious: Yes (Other)
  Sender: FDA-Public Use
  Company Number: JP-JNJFOC-20100801579

PATIENT
  Sex: Female
  Weight: 49 kg

DRUGS (8)
  1. DOXORUBICIN HCL [Suspect]
     Indication: OVARIAN CANCER RECURRENT
     Dosage: 4 COURSE
     Route: 042
  2. DOXORUBICIN HCL [Suspect]
     Dosage: 3 COURSE
     Route: 042
  3. DOXORUBICIN HCL [Suspect]
     Dosage: 6 COURSE
     Route: 042
  4. DOXORUBICIN HCL [Suspect]
     Dosage: 1COURSE
     Route: 042
  5. DOXORUBICIN HCL [Suspect]
     Dosage: 5 COURSE
     Route: 042
  6. DOXORUBICIN HCL [Suspect]
     Dosage: 2 COURSE
     Route: 042
  7. XYLOCAINE [Concomitant]
     Route: 002
  8. SULFADIAZINE [Concomitant]
     Route: 061

REACTIONS (1)
  - PERICARDIAL EFFUSION [None]
